FAERS Safety Report 7124815-4 (Version None)
Quarter: 2010Q4

REPORT INFORMATION
  Report Type: 
  Country: None (occurrence: None)
  Receive Date: 20101129
  Receipt Date: 20101117
  Transmission Date: 20110411
  Serious: Yes (Hospitalization)
  Sender: FDA-Public Use
  Company Number: CA-ELI_LILLY_AND_COMPANY-CA201011004858

PATIENT
  Age: 77 Year
  Sex: Male

DRUGS (9)
  1. FORTEO [Suspect]
     Indication: OSTEOPOROSIS
     Dosage: 20 UG, DAILY (1/D)
     Route: 058
     Dates: start: 20090515
  2. MOTILIUM [Concomitant]
  3. AMITRIPTYLINE [Concomitant]
  4. CRESTOR [Concomitant]
  5. MIRAPEX [Concomitant]
  6. METFORMIN [Concomitant]
  7. DIAMICRON [Concomitant]
  8. ACEBUTOLOL [Concomitant]
  9. DETROL [Concomitant]

REACTIONS (2)
  - CEREBROVASCULAR ACCIDENT [None]
  - COMA [None]
